FAERS Safety Report 5453858-1 (Version None)
Quarter: 2007Q3

REPORT INFORMATION
  Report Type: 
  Country: None (occurrence: None)
  Receive Date: 20070917
  Receipt Date: 20070914
  Transmission Date: 20080115
  Serious: Yes (Life-Threatening)
  Sender: FDA-Public Use
  Company Number: B0482822A

PATIENT
  Age: 84 Year
  Sex: Female
  Weight: 50.1 kg

DRUGS (11)
  1. ARIXTRA [Suspect]
     Indication: THROMBOSIS PROPHYLAXIS
     Dosage: 2.5MG PER DAY
     Route: 058
     Dates: start: 20070720, end: 20070801
  2. ALDACTONE [Concomitant]
     Indication: CARDIAC FAILURE CHRONIC
     Dosage: 25MG PER DAY
     Route: 048
  3. LOSARTAN POTASSIUM [Concomitant]
     Indication: HYPERTENSION
     Dosage: 50MG PER DAY
     Route: 048
  4. URINORM [Concomitant]
     Dosage: 50MG PER DAY
     Route: 048
     Dates: end: 20070803
  5. FUROSEMIDE [Concomitant]
     Indication: CARDIAC FAILURE CHRONIC
     Dosage: 20MG UNKNOWN
     Route: 048
  6. ALINAMIN-F [Concomitant]
     Indication: NEURALGIA
     Dosage: 75MG PER DAY
     Route: 048
     Dates: end: 20070803
  7. SERENAL [Concomitant]
     Indication: PSYCHOSOMATIC DISEASE
     Dosage: 30MG PER DAY
     Route: 048
     Dates: end: 20070803
  8. MOBIC [Concomitant]
     Indication: PAIN
     Dosage: 10MG PER DAY
     Route: 048
     Dates: start: 20070727, end: 20070803
  9. GASPORT [Concomitant]
     Dosage: 20MG PER DAY
     Route: 048
     Dates: start: 20070727
  10. WARFARIN SODIUM [Concomitant]
     Indication: THROMBOSIS PROPHYLAXIS
     Dosage: 1MG PER DAY
     Route: 048
     Dates: start: 20070730
  11. UNKNOWN DRUG [Concomitant]
     Indication: PAIN
     Route: 048
     Dates: start: 20070713

REACTIONS (3)
  - ANAEMIA [None]
  - CYANOSIS [None]
  - MALAISE [None]
